FAERS Safety Report 6066249-X (Version None)
Quarter: 2009Q1

REPORT INFORMATION
  Report Type: 
  Country: None (occurrence: None)
  Receive Date: 20090202
  Receipt Date: 20090127
  Transmission Date: 20090719
  Serious: No
  Sender: FDA-Public Use
  Company Number: 090032

PATIENT
  Age: 77 Year
  Sex: Female

DRUGS (4)
  1. HALFLYTELY [Suspect]
     Indication: COLONOSCOPY
     Dosage: 10MG/PO
     Route: 048
     Dates: start: 20090126
  2. ATENOLOL [Concomitant]
  3. LISINOPRIL [Concomitant]
  4. STIRONOLACTONE [Concomitant]

REACTIONS (3)
  - ABDOMINAL PAIN [None]
  - ABDOMINAL PAIN UPPER [None]
  - DIARRHOEA [None]
